FAERS Safety Report 10076518 (Version 1)
Quarter: 2014Q2

REPORT INFORMATION
  Report Type: Report from Study
  Country: GB (occurrence: GB)
  Receive Date: 20140414
  Receipt Date: 20140414
  Transmission Date: 20141212
  Serious: Yes (Congenital Anomaly)
  Sender: FDA-Public Use
  Company Number: GB-UCBSA-117786

PATIENT
  Sex: 0

DRUGS (4)
  1. LEVETIRACETAM [Suspect]
     Indication: EPILEPSY
     Dosage: DAILY DOSE: 1000 (UNITS UNSPECIFIED)
     Route: 064
     Dates: start: 2011, end: 2011
  2. LEVETIRACETAM [Suspect]
     Indication: EPILEPSY
     Route: 064
     Dates: start: 2011, end: 2011
  3. LAMOTRIGINE [Suspect]
     Indication: EPILEPSY
     Dosage: UNKNOWN DOSE
     Route: 064
     Dates: start: 2011, end: 2011
  4. LAMOTRIGINE [Suspect]
     Indication: EPILEPSY
     Route: 064
     Dates: start: 2011, end: 2011

REACTIONS (5)
  - Cytogenetic abnormality [Not Recovered/Not Resolved]
  - Cleft palate [Not Recovered/Not Resolved]
  - Congenital central nervous system anomaly [Not Recovered/Not Resolved]
  - Hypospadias [Not Recovered/Not Resolved]
  - Foetal exposure during pregnancy [Recovered/Resolved]
